FAERS Safety Report 4951334-3 (Version None)
Quarter: 2006Q1

REPORT INFORMATION
  Report Type: 
  Country: None (occurrence: None)
  Receive Date: 20060317
  Receipt Date: 20060301
  Transmission Date: 20060701
  Serious: Yes (Hospitalization)
  Sender: FDA-Public Use
  Company Number: FR200603000373

PATIENT
  Age: 55 Year
  Sex: Female

DRUGS (6)
  1. FORTEO [Suspect]
     Indication: OSTEOPOROSIS
     Dosage: 20 UG, EACH EVENING, SUBCUTANEOUS
     Route: 058
     Dates: start: 20050922
  2. FORTEO [Concomitant]
  3. AERIUS (DESLORATADINE) TABLET [Concomitant]
  4. SERETIDE (FLUTICASONE PROPIONATE, SALMETEROL) [Concomitant]
  5. HYDROCORTISONE [Concomitant]
  6. THEOSTAT (THEOPHYLLINE) [Concomitant]

REACTIONS (3)
  - ABDOMINAL PAIN [None]
  - HYPERTHERMIA [None]
  - NAUSEA [None]
